FAERS Safety Report 12176959 (Version 1)
Quarter: 2016Q1

REPORT INFORMATION
  Report Type: Spontaneous
  Country: IT (occurrence: IT)
  Receive Date: 20160314
  Receipt Date: 20160314
  Transmission Date: 20160526
  Serious: Yes (Other)
  Sender: FDA-Public Use
  Company Number: IT-FRI-1000083235

PATIENT
  Age: 49 Year
  Sex: Male

DRUGS (6)
  1. TRIATEC [Suspect]
     Active Substance: RAMIPRIL
     Indication: HYPERTENSION
     Route: 048
     Dates: start: 20150101
  2. NORVASC [Concomitant]
     Active Substance: AMLODIPINE BESYLATE
  3. NEBIVOLOL. [Suspect]
     Active Substance: NEBIVOLOL
     Indication: HYPERTENSION
     Dosage: 5 MG
     Route: 048
     Dates: start: 20150101
  4. CATAPRESAN [Concomitant]
     Active Substance: CLONIDINE
  5. CITALOPRAM [Concomitant]
     Active Substance: CITALOPRAM HYDROBROMIDE
  6. XANAX [Concomitant]
     Active Substance: ALPRAZOLAM

REACTIONS (4)
  - Presyncope [Recovering/Resolving]
  - Sinus bradycardia [Recovering/Resolving]
  - Hypokalaemia [Recovering/Resolving]
  - Hypotension [Recovering/Resolving]

NARRATIVE: CASE EVENT DATE: 20150902
